FAERS Safety Report 18782570 (Version 1)
Quarter: 2021Q1

REPORT INFORMATION
  Report Type: Spontaneous
  Country: US (occurrence: US)
  Receive Date: 20210125
  Receipt Date: 20210125
  Transmission Date: 20210419
  Serious: No
  Sender: FDA-Public Use
  Company Number: US-ALLERGAN-2026980US

PATIENT
  Age: 77 Year
  Sex: Female

DRUGS (4)
  1. ELIQUIS [Concomitant]
     Active Substance: APIXABAN
     Indication: BLOOD DISORDER
     Dosage: UNK, Q12H
     Route: 048
  2. FLECAINIDE [Concomitant]
     Active Substance: FLECAINIDE
     Indication: ATRIAL FIBRILLATION
     Route: 048
  3. RESTASIS [Suspect]
     Active Substance: CYCLOSPORINE
     Indication: DRY EYE
     Dosage: 2 GTT, Q12H
     Route: 047
     Dates: start: 20180323, end: 202004
  4. SYSTANE (HYPROMELLOSE 2910 (4000 MPA.S)) [Concomitant]
     Active Substance: HYPROMELLOSE 2910 (4000 MPA.S)
     Indication: EYE LUBRICATION THERAPY
     Dosage: UNK, QID
     Route: 047

REACTIONS (3)
  - Speech disorder [Recovered/Resolved]
  - Multiple use of single-use product [Unknown]
  - Cerebrovascular accident [Recovered/Resolved]

NARRATIVE: CASE EVENT DATE: 20181205
